FAERS Safety Report 19359244 (Version 1)
Quarter: 2021Q2

REPORT INFORMATION
  Report Type: Spontaneous
  Country: FR (occurrence: FR)
  Receive Date: 20210602
  Receipt Date: 20210602
  Transmission Date: 20210717
  Serious: Yes (Life-Threatening, Hospitalization)
  Sender: FDA-Public Use
  Company Number: FR-TEVA-2021-FR-1917387

PATIENT
  Age: 58 Year
  Sex: Female

DRUGS (3)
  1. OXALIPLATIN. [Suspect]
     Active Substance: OXALIPLATIN
     Indication: ADENOCARCINOMA OF COLON
     Dosage: RECEIVED 12 CYCLES OF FOLFOX REGIMEN
     Route: 065
     Dates: end: 201802
  2. FLUOROURACIL. [Suspect]
     Active Substance: FLUOROURACIL
     Indication: ADENOCARCINOMA OF COLON
     Dosage: RECEIVED 12 CYCLES OF FOLFOX REGIMEN
     Route: 065
     Dates: end: 201802
  3. FOLINIC ACID [Suspect]
     Active Substance: LEUCOVORIN
     Indication: ADENOCARCINOMA OF COLON
     Dosage: RECEIVED 12 CYCLES OF FOLFOX REGIMEN
     Route: 065
     Dates: end: 201802

REACTIONS (4)
  - Condition aggravated [Unknown]
  - Systemic scleroderma [Unknown]
  - Interstitial lung disease [Unknown]
  - Respiratory distress [Unknown]

NARRATIVE: CASE EVENT DATE: 2018
